FAERS Safety Report 5392046-4 (Version None)
Quarter: 2007Q3

REPORT INFORMATION
  Report Type: 
  Country: None (occurrence: None)
  Receive Date: 20070720
  Receipt Date: 20070711
  Transmission Date: 20080115
  Serious: Yes (Hospitalization)
  Sender: FDA-Public Use
  Company Number: NL-JNJFOC-20070606560

PATIENT
  Sex: Male
  Weight: 39 kg

DRUGS (5)
  1. INFLIXIMAB [Suspect]
     Route: 042
  2. INFLIXIMAB [Suspect]
     Route: 042
  3. INFLIXIMAB [Suspect]
     Indication: CROHN'S DISEASE
     Route: 042
  4. AZATHIAPRINE [Concomitant]
     Indication: CROHN'S DISEASE
  5. FRAXIPARINE [Concomitant]
     Indication: PROPHYLAXIS

REACTIONS (1)
  - MALNUTRITION [None]
